FAERS Safety Report 11366260 (Version 1)
Quarter: 2015Q3

REPORT INFORMATION
  Report Type: Report from Study
  Country: US (occurrence: US)
  Receive Date: 20150811
  Receipt Date: 20150811
  Transmission Date: 20151125
  Serious: Yes (Other)
  Sender: FDA-Public Use
  Company Number: US-BAXALTA-2015BAX006131

PATIENT
  Age: 58 Year
  Sex: Female
  Weight: 54.5 kg

DRUGS (2)
  1. HUMAN NORMAL IMMUNOGLOBULIN; LIQUID [Suspect]
     Active Substance: HUMAN IMMUNOGLOBULIN G
     Indication: PRIMARY IMMUNODEFICIENCY SYNDROME
     Dosage: 30 G, 1X A MONTH
     Route: 042
  2. HUMAN NORMAL IMMUNOGLOBULIN; LIQUID [Suspect]
     Active Substance: HUMAN IMMUNOGLOBULIN G
     Dosage: 40 G, EVERY 4 WK
     Route: 042
     Dates: end: 201412

REACTIONS (9)
  - Ear infection [Recovering/Resolving]
  - Pharyngitis streptococcal [Unknown]
  - Sinusitis [Recovering/Resolving]
  - Incorrect dose administered [Unknown]
  - Weight decreased [Unknown]
  - Muscle spasms [Unknown]
  - Blood immunoglobulin A decreased [Recovering/Resolving]
  - Pruritus [Unknown]
  - Headache [Unknown]

NARRATIVE: CASE EVENT DATE: 201411
